FAERS Safety Report 7968855-1 (Version None)
Quarter: 2011Q4

REPORT INFORMATION
  Report Type: 
  Country: None (occurrence: None)
  Receive Date: 20111122
  Receipt Date: 20110727
  Transmission Date: 20120403
  Serious: Yes (Other)
  Sender: FDA-Public Use
  Company Number: PHHY2011US66743

PATIENT
  Sex: Female

DRUGS (8)
  1. TRAZODONE HCL [Concomitant]
  2. GILENYA [Suspect]
     Dosage: 0.5 MG, QD, ORAL
     Route: 048
  3. CITALOPRAM (CITALOPRAM), 10 MG UNK TO 07/16/2011 [Concomitant]
  4. SEPTRA (SULFAMETHOXAZOLE, TRIMETHOPRIM), 100-160 MG [Concomitant]
  5. PROVIGIL [Concomitant]
  6. LAMOTRIGINE [Concomitant]
  7. ULTRAM (TRAMADOL HYDROCHLORIDE), 50 MG [Concomitant]
  8. BACLOFEN [Concomitant]

REACTIONS (12)
  - SINUSITIS [None]
  - TREMOR [None]
  - ASTHENIA [None]
  - HYPOAESTHESIA [None]
  - SPEECH DISORDER [None]
  - MULTIPLE SCLEROSIS RELAPSE [None]
  - SKIN INFECTION [None]
  - BRONCHITIS [None]
  - CONFUSIONAL STATE [None]
  - HEART RATE DECREASED [None]
  - AMNESIA [None]
  - DISORIENTATION [None]
